FAERS Safety Report 15516790 (Version 1)
Quarter: 2018Q4

REPORT INFORMATION
  Report Type: Report from Study
  Country: TN (occurrence: TN)
  Receive Date: 20181017
  Receipt Date: 20181017
  Transmission Date: 20190205
  Serious: Yes (Death)
  Sender: FDA-Public Use
  Company Number: TN-SANIK-2018SA285198AA

PATIENT
  Age: 83 Year
  Sex: Male

DRUGS (6)
  1. CLOPIDOGREL BISULFATE. [Suspect]
     Active Substance: CLOPIDOGREL BISULFATE
     Dosage: 75 MG, QD
     Route: 048
     Dates: start: 20171019, end: 20180914
  2. LOWRAC [Suspect]
     Active Substance: AMLODIPINE BESYLATE
  3. TORVA [ATORVASTATIN CALCIUM] [Concomitant]
  4. ASPIRINE [Concomitant]
     Active Substance: ASPIRIN
     Dosage: UNK UNK, UNK
  5. ALDACTONE [Concomitant]
     Active Substance: SPIRONOLACTONE
     Dosage: UNK UNK, UNK
  6. LASILIX [FUROSEMIDE] [Concomitant]

REACTIONS (4)
  - Tremor [Unknown]
  - Fatigue [Unknown]
  - Discomfort [Unknown]
  - Ischaemic stroke [Fatal]

NARRATIVE: CASE EVENT DATE: 20180914
